FAERS Safety Report 10263847 (Version 1)
Quarter: 2014Q2

REPORT INFORMATION
  Report Type: Spontaneous
  Country: IE (occurrence: IE)
  Receive Date: 20140627
  Receipt Date: 20140627
  Transmission Date: 20141212
  Serious: Yes (Death)
  Sender: FDA-Public Use
  Company Number: IE-AMGEN-IRLSP2014046474

PATIENT
  Age: 77 Year
  Sex: Female

DRUGS (10)
  1. ARANESP [Suspect]
     Indication: RENAL FAILURE CHRONIC
     Dosage: 30 MUG, Q2WK
     Route: 058
     Dates: start: 20120530
  2. TRAMADOL [Concomitant]
  3. MAXOLON [Concomitant]
  4. LIPITOR [Concomitant]
  5. PRAXILENE [Concomitant]
  6. FRUSEMIDE                          /00032601/ [Concomitant]
  7. ASPIRIN [Concomitant]
  8. DIGOXIN [Concomitant]
  9. FOLIC ACID [Concomitant]
  10. VITAMIN D                          /00107901/ [Concomitant]

REACTIONS (1)
  - Death [Fatal]
